FAERS Safety Report 6361615-7 (Version None)
Quarter: 2009Q3

REPORT INFORMATION
  Report Type: 
  Country: None (occurrence: None)
  Receive Date: 20090918
  Receipt Date: 20090909
  Transmission Date: 20100115
  Serious: Yes (Other)
  Sender: FDA-Public Use
  Company Number: PHEH2009US10087

PATIENT
  Sex: Female
  Weight: 103.86 kg

DRUGS (14)
  1. EXJADE [Suspect]
     Indication: IRON OVERLOAD
     Dosage: 2000 MG, QD
     Route: 048
     Dates: start: 20090829
  2. LORTAB [Concomitant]
     Dosage: 10/500 MG 1-2 TABLETS Q 4-6 HOURS PRN
  3. ALBUTEROL [Concomitant]
     Dosage: UNK
  4. TOPROL-XL [Concomitant]
     Dosage: 25 MG, BID
  5. SINGULAIR [Concomitant]
     Dosage: 10 MG, QD
  6. ZOLOFT [Concomitant]
     Dosage: 200 MG, QD
  7. COMBIVENT                               /GFR/ [Concomitant]
     Dosage: 2 PUFFS BID
  8. ARANESP [Concomitant]
     Dosage: 500 MCG Q WEEK
  9. OXYCONTIN [Concomitant]
     Dosage: 20 MG, BID
  10. NORVASC [Concomitant]
     Dosage: 10 MG, QD
  11. BACLOFEN [Concomitant]
     Dosage: 10 MG, TID
  12. NEURONTIN [Concomitant]
     Dosage: 200 MG, TID
  13. MIRALAX [Concomitant]
  14. VIDAZA [Suspect]

REACTIONS (4)
  - ABDOMINAL PAIN UPPER [None]
  - DIARRHOEA [None]
  - EPISTAXIS [None]
  - HAEMOPTYSIS [None]
